FAERS Safety Report 10048825 (Version 1)
Quarter: 2014Q1

REPORT INFORMATION
  Report Type: Spontaneous
  Country: US (occurrence: US)
  Receive Date: 20140331
  Receipt Date: 20140331
  Transmission Date: 20141002
  Serious: Yes (Other)
  Sender: FDA-Public Use
  Company Number: PHHY2014US036995

PATIENT
  Age: 31 Year
  Sex: Female

DRUGS (7)
  1. PREDNISONE [Suspect]
  2. METHOTREXATE [Suspect]
  3. AZATHIOPRINE [Suspect]
  4. CYCLOPHOSPHAMIDE [Suspect]
  5. RITUXIMAB [Suspect]
  6. DEPOMEDROL [Concomitant]
  7. MITOMYCIN [Concomitant]

REACTIONS (3)
  - Drug resistance [Unknown]
  - Granulomatosis with polyangiitis [Unknown]
  - Disease recurrence [Unknown]
